FAERS Safety Report 5261135-7 (Version None)
Quarter: 2007Q1

REPORT INFORMATION
  Report Type: 
  Country: None (occurrence: None)
  Receive Date: 20070309
  Receipt Date: 20070301
  Transmission Date: 20070707
  Serious: Yes (Other)
  Sender: FDA-Public Use
  Company Number: GB-ABBOTT-07P-167-0360807-00

PATIENT
  Age: 66 Year
  Sex: Male
  Weight: 70 kg

DRUGS (4)
  1. ERYTHROCIN [Suspect]
     Indication: LOWER RESPIRATORY TRACT INFECTION
     Dates: start: 20060927, end: 20060928
  2. AMOXICILLIN [Concomitant]
     Indication: INFECTION
     Dates: start: 20060912, end: 20060919
  3. CODEINE PHOSPHATE [Concomitant]
     Indication: PAIN
     Dates: start: 20060921
  4. PHOLCODINE [Concomitant]
     Indication: COUGH
     Dates: start: 20060814

REACTIONS (2)
  - DIZZINESS [None]
  - FALL [None]
